FAERS Safety Report 5679711-6 (Version None)
Quarter: 2008Q1

REPORT INFORMATION
  Report Type: 
  Country: None (occurrence: None)
  Receive Date: 20080324
  Receipt Date: 20080319
  Transmission Date: 20080703
  Serious: Yes (Other)
  Sender: FDA-Public Use
  Company Number: 025324

PATIENT
  Age: 13 Year
  Sex: Male

DRUGS (10)
  1. METHOTREXATE [Suspect]
     Indication: NON-HODGKIN'S LYMPHOMA RECURRENT
     Dosage: SEE IMAGE
     Route: 042
     Dates: start: 20050301
  2. SODIUM BICARBONATE IN PLASTIC CONTAINER [Concomitant]
  3. DEXAMETHASONE TAB [Concomitant]
  4. CYCLOPHOSPHAMIDE [Concomitant]
  5. CYTARABINE [Concomitant]
  6. HYDROCORTISONE [Concomitant]
  7. VINCRISTINE [Concomitant]
  8. FENTANYL [Concomitant]
  9. LEUCOVORIN CALCIUM [Concomitant]
  10. CARBOXYPEPTIDASE G2 [Concomitant]

REACTIONS (2)
  - MUCOSAL INFLAMMATION [None]
  - NEPHROPATHY TOXIC [None]
